FAERS Safety Report 10687293 (Version 2)
Quarter: 2015Q1

REPORT INFORMATION
  Report Type: Spontaneous
  Country: GB (occurrence: GB)
  Receive Date: 20150102
  Receipt Date: 20150102
  Transmission Date: 20150720
  Serious: Yes (Other)
  Sender: FDA-Public Use
  Company Number: GB-RANBAXY-2012R1-56755

PATIENT
  Age: 1 Month

DRUGS (2)
  1. TRIAMCINOLONE [Suspect]
     Active Substance: TRIAMCINOLONE
     Indication: HAEMANGIOMA
     Dosage: UNK
     Route: 026
  2. PREDNISOLONE. [Suspect]
     Active Substance: PREDNISOLONE
     Indication: HAEMANGIOMA
     Dosage: 20 MG, DAILY
     Route: 048

REACTIONS (1)
  - Adrenal suppression [Unknown]
